FAERS Safety Report 7250774-X (Version None)
Quarter: 2011Q1

REPORT INFORMATION
  Report Type: 
  Country: None (occurrence: None)
  Receive Date: 20110128
  Receipt Date: 20110117
  Transmission Date: 20110831
  Serious: Yes (Life-Threatening)
  Sender: FDA-Public Use
  Company Number: JP-CELGENEUS-087-21880-10121502

PATIENT
  Sex: Female
  Weight: 33 kg

DRUGS (7)
  1. RED BLOOD CELL TRANSFUSION [Concomitant]
     Route: 065
  2. REVLIMID [Suspect]
     Indication: MYELODYSPLASTIC SYNDROME
     Route: 048
     Dates: start: 20100909, end: 20100918
  3. MIYA BM [Concomitant]
     Indication: PROPHYLAXIS
     Route: 048
     Dates: start: 20100220, end: 20101010
  4. TAKEPRON [Concomitant]
     Indication: PROPHYLAXIS
     Route: 048
     Dates: start: 20100326, end: 20100827
  5. TOUGHMAC E [Concomitant]
     Indication: PROPHYLAXIS
     Route: 048
     Dates: start: 20100209, end: 20101010
  6. EXJADE [Concomitant]
     Indication: HAEMOCHROMATOSIS
     Route: 048
     Dates: start: 20100717, end: 20100912
  7. NAUZELIN [Concomitant]
     Indication: PROPHYLAXIS
     Route: 048
     Dates: start: 20100729, end: 20100919

REACTIONS (1)
  - SEPSIS [None]
